FAERS Safety Report 7823568-1 (Version None)
Quarter: 2011Q4

REPORT INFORMATION
  Report Type: 
  Country: None (occurrence: None)
  Receive Date: 20111019
  Receipt Date: 20111012
  Transmission Date: 20120403
  Serious: Yes (Other)
  Sender: FDA-Public Use
  Company Number: FR-GENZYME-THYM-1002839

PATIENT

DRUGS (2)
  1. THYMOGLOBULIN [Suspect]
     Dosage: 2 MG, QD
     Route: 042
  2. THYMOGLOBULIN [Suspect]
     Indication: PRODUCT USED FOR UNKNOWN INDICATION
     Dosage: 0.5 MG, QD
     Route: 042

REACTIONS (1)
  - CYTOLYTIC HEPATITIS [None]
